FAERS Safety Report 9800016 (Version 2)
Quarter: 2014Q1

REPORT INFORMATION
  Report Type: Spontaneous
  Country: US (occurrence: US)
  Receive Date: 20140106
  Receipt Date: 20140106
  Transmission Date: 20141002
  Serious: No
  Sender: FDA-Public Use
  Company Number: US-GILEAD-2010-0030497

PATIENT
  Age: 67 Year
  Sex: Male

DRUGS (14)
  1. LETAIRIS [Suspect]
     Indication: PULMONARY ARTERIAL HYPERTENSION
     Route: 048
     Dates: start: 20100428
  2. AZITHROMYCIN [Concomitant]
  3. GLIPIZIDE [Concomitant]
  4. THEOPHYLLINE [Concomitant]
  5. OXYGEN [Concomitant]
  6. NITROGLYCERIN [Concomitant]
  7. LORAZEPAM [Concomitant]
  8. AMLODIPINE [Concomitant]
  9. METFORMIN [Concomitant]
  10. PRAVASTATIN [Concomitant]
  11. SYMBICORT [Concomitant]
  12. SPIRIVA [Concomitant]
  13. ASPIRIN [Concomitant]
  14. DUONEB [Concomitant]

REACTIONS (4)
  - Angioedema [Unknown]
  - Constipation [Unknown]
  - Abdominal pain [Unknown]
  - Local swelling [Unknown]
